FAERS Safety Report 11880322 (Version 1)
Quarter: 2015Q4

REPORT INFORMATION
  Report Type: Spontaneous
  Country: BR (occurrence: BR)
  Receive Date: 20151230
  Receipt Date: 20151230
  Transmission Date: 20160305
  Serious: Yes (Hospitalization)
  Sender: FDA-Public Use
  Company Number: PHHY2015BR170256

PATIENT
  Sex: Female

DRUGS (1)
  1. EXELON PATCH [Suspect]
     Active Substance: RIVASTIGMINE
     Indication: PARKINSON^S DISEASE
     Dosage: 4.6 MG (PATCH 9 MG/ 5CM2 30 PATCHES), UNK
     Route: 062

REACTIONS (4)
  - Aphasia [Unknown]
  - Rebound effect [Unknown]
  - General physical health deterioration [Unknown]
  - Tremor [Unknown]
